FAERS Safety Report 16545436 (Version 6)
Quarter: 2025Q3

REPORT INFORMATION
  Report Type: Spontaneous
  Country: EU (occurrence: EU)
  Receive Date: 20190709
  Receipt Date: 20250804
  Transmission Date: 20251021
  Serious: Yes (Life-Threatening, Hospitalization, Other)
  Sender: MYLAN
  Company Number: EU-JABAREC-2019000153

PATIENT
  Age: 29 Year
  Sex: Female

DRUGS (28)
  1. SERTRALINE [Suspect]
     Active Substance: SERTRALINE HYDROCHLORIDE
     Indication: Depression
  2. SERTRALINE [Suspect]
     Active Substance: SERTRALINE HYDROCHLORIDE
  3. SERTRALINE [Suspect]
     Active Substance: SERTRALINE HYDROCHLORIDE
     Route: 065
  4. SERTRALINE [Suspect]
     Active Substance: SERTRALINE HYDROCHLORIDE
     Route: 065
  5. SERTRALINE [Suspect]
     Active Substance: SERTRALINE HYDROCHLORIDE
  6. SERTRALINE [Suspect]
     Active Substance: SERTRALINE HYDROCHLORIDE
  7. SERTRALINE [Suspect]
     Active Substance: SERTRALINE HYDROCHLORIDE
     Route: 065
  8. SERTRALINE [Suspect]
     Active Substance: SERTRALINE HYDROCHLORIDE
     Route: 065
  9. METHIMAZOLE [Suspect]
     Active Substance: METHIMAZOLE
     Indication: Hyperthyroidism
  10. METHIMAZOLE [Suspect]
     Active Substance: METHIMAZOLE
     Indication: Thyroid disorder
  11. METHIMAZOLE [Suspect]
     Active Substance: METHIMAZOLE
     Route: 065
  12. METHIMAZOLE [Suspect]
     Active Substance: METHIMAZOLE
     Route: 065
  13. METHIMAZOLE [Suspect]
     Active Substance: METHIMAZOLE
  14. METHIMAZOLE [Suspect]
     Active Substance: METHIMAZOLE
  15. METHIMAZOLE [Suspect]
     Active Substance: METHIMAZOLE
     Route: 065
  16. METHIMAZOLE [Suspect]
     Active Substance: METHIMAZOLE
     Route: 065
  17. LEVOTHYROXINE [Suspect]
     Active Substance: LEVOTHYROXINE
     Indication: Product used for unknown indication
  18. LEVOTHYROXINE [Suspect]
     Active Substance: LEVOTHYROXINE
     Route: 065
  19. LEVOTHYROXINE [Suspect]
     Active Substance: LEVOTHYROXINE
     Route: 065
  20. LEVOTHYROXINE [Suspect]
     Active Substance: LEVOTHYROXINE
  21. CARBOMER [Suspect]
     Active Substance: CARBOMER
     Indication: Eye lubrication therapy
  22. CARBOMER [Suspect]
     Active Substance: CARBOMER
     Route: 065
  23. CARBOMER [Suspect]
     Active Substance: CARBOMER
     Route: 065
  24. CARBOMER [Suspect]
     Active Substance: CARBOMER
  25. METHYLPREDNISOLONE [Suspect]
     Active Substance: METHYLPREDNISOLONE
     Indication: Product used for unknown indication
  26. METHYLPREDNISOLONE [Suspect]
     Active Substance: METHYLPREDNISOLONE
     Route: 042
  27. METHYLPREDNISOLONE [Suspect]
     Active Substance: METHYLPREDNISOLONE
     Route: 042
  28. METHYLPREDNISOLONE [Suspect]
     Active Substance: METHYLPREDNISOLONE

REACTIONS (10)
  - Suicide attempt [Recovered/Resolved]
  - Therapeutic product effect incomplete [Recovered/Resolved]
  - Treatment noncompliance [Recovered/Resolved]
  - Drug withdrawal syndrome [Recovered/Resolved]
  - Failure to suspend medication [Recovered/Resolved]
  - Exophthalmos [Unknown]
  - Disease progression [Unknown]
  - Drug abuse [Unknown]
  - Depression [Unknown]
  - Medication error [Unknown]
